FAERS Safety Report 6095537-6 (Version None)
Quarter: 2009Q1

REPORT INFORMATION
  Report Type: 
  Country: None (occurrence: None)
  Receive Date: 20090227
  Receipt Date: 20080422
  Transmission Date: 20090719
  Serious: Yes (Other)
  Sender: FDA-Public Use
  Company Number: A0724136A

PATIENT
  Age: 39 Year
  Sex: Male

DRUGS (5)
  1. LAMICTAL [Suspect]
     Dosage: 100MG PER DAY
     Route: 048
     Dates: start: 20080221
  2. DEPAKOTE ER [Concomitant]
  3. WELLBUTRIN XL [Concomitant]
  4. AMITRIPTYLINE [Concomitant]
  5. PROTONIX [Concomitant]

REACTIONS (1)
  - CONVULSION [None]
